FAERS Safety Report 9560147 (Version 4)
Quarter: 2014Q2

REPORT INFORMATION
  Report Type: Report from Study
  Country: JP (occurrence: JP)
  Receive Date: 20130927
  Receipt Date: 20140407
  Transmission Date: 20141212
  Serious: Yes (Other)
  Sender: FDA-Public Use
  Company Number: JP-JNJFOC-20130915438

PATIENT
  Age: 72 Year
  Sex: Female

DRUGS (10)
  1. STELARA [Suspect]
     Indication: PSORIASIS
     Route: 058
     Dates: start: 20130424, end: 20130424
  2. STELARA [Suspect]
     Indication: PSORIASIS
     Route: 058
     Dates: start: 20130325, end: 20130325
  3. NOVORAPID [Concomitant]
     Indication: DIABETES MELLITUS
     Dosage: 4IU IN THE MORNING, 2IU AT NOON AND 2IU IN THE EVENING
     Route: 065
  4. ITOROL [Concomitant]
     Indication: PROPHYLAXIS
     Route: 048
  5. ACTOS [Concomitant]
     Route: 048
  6. BAYASPIRIN [Concomitant]
     Route: 048
  7. UNISIA [Concomitant]
     Route: 048
  8. PAXIL [Concomitant]
     Route: 048
  9. ATELEC [Concomitant]
     Route: 048
  10. ARGAMATE [Concomitant]
     Route: 048

REACTIONS (1)
  - Squamous cell carcinoma of skin [Unknown]
